FAERS Safety Report 15783057 (Version 1)
Quarter: 2019Q1

REPORT INFORMATION
  Report Type: Spontaneous
  Country: JP (occurrence: JP)
  Receive Date: 20190102
  Receipt Date: 20190102
  Transmission Date: 20190417
  Serious: Yes (Other)
  Sender: FDA-Public Use
  Company Number: JP-ALLERGAN-1859821US

PATIENT
  Age: 35 Year
  Sex: Male

DRUGS (3)
  1. LORAMET [Concomitant]
     Active Substance: LORMETAZEPAM
     Route: 048
  2. SOLANAX [Concomitant]
     Active Substance: ALPRAZOLAM
     Route: 048
  3. ESCITALOPRAM OXALATE - BP [Suspect]
     Active Substance: ESCITALOPRAM OXALATE
     Indication: DEPRESSIVE SYMPTOM
     Route: 048

REACTIONS (3)
  - Gamma-glutamyltransferase increased [Unknown]
  - Seizure [Recovered/Resolved]
  - Alanine aminotransferase increased [Unknown]
